FAERS Safety Report 19134246 (Version 1)
Quarter: 2021Q2

REPORT INFORMATION
  Report Type: Spontaneous
  Country: US (occurrence: US)
  Receive Date: 20210414
  Receipt Date: 20210414
  Transmission Date: 20210717
  Serious: Yes (Other)
  Sender: FDA-Public Use
  Company Number: None

PATIENT
  Age: 78 Year
  Sex: Female
  Weight: 74.25 kg

DRUGS (8)
  1. MULTIVITAMIN/MINERAL [Concomitant]
  2. CLINDAMYCIN.WALMART SUBSTITUTED FOR CLEOCIN SUBSCRIBED. PRESC.#7867488 [Suspect]
     Active Substance: CLINDAMYCIN HYDROCHLORIDE
     Indication: INFECTION PROPHYLAXIS
     Route: 048
     Dates: start: 20210330, end: 20210406
  3. FLECAINIDE ACETATE. [Concomitant]
     Active Substance: FLECAINIDE ACETATE
  4. VITAMIN D [Concomitant]
     Active Substance: VITAMIN D NOS
  5. LEVOTHYROXIN [Concomitant]
     Active Substance: LEVOTHYROXINE
  6. ELIQUIS [Concomitant]
     Active Substance: APIXABAN
  7. MAGNESIUM [Concomitant]
     Active Substance: MAGNESIUM
  8. VITAMIN C [Concomitant]
     Active Substance: ASCORBIC ACID

REACTIONS (2)
  - Insomnia [None]
  - Hypersensitivity [None]

NARRATIVE: CASE EVENT DATE: 20210330
